FAERS Safety Report 13924200 (Version 1)
Quarter: 2017Q3

REPORT INFORMATION
  Report Type: Spontaneous
  Country: US (occurrence: US)
  Receive Date: 20170831
  Receipt Date: 20170831
  Transmission Date: 20171127
  Serious: Yes (Life-Threatening, Other)
  Sender: FDA-Public Use
  Company Number: US-JNJFOC-20170824608

PATIENT
  Age: 26 Year
  Sex: Male

DRUGS (2)
  1. LOPERAMIDE HYDROCHLORIDE. [Suspect]
     Active Substance: LOPERAMIDE HYDROCHLORIDE
     Indication: DRUG USE DISORDER
     Route: 065
  2. LOPERAMIDE HYDROCHLORIDE. [Suspect]
     Active Substance: LOPERAMIDE HYDROCHLORIDE
     Route: 065

REACTIONS (8)
  - Drug abuse [Unknown]
  - Overdose [Unknown]
  - Bradycardia [Unknown]
  - Ventricular tachycardia [Unknown]
  - Electrolyte imbalance [Unknown]
  - Arrhythmia [Unknown]
  - Hyperglycaemia [Unknown]
  - Hepatic enzyme increased [Unknown]
